FAERS Safety Report 13587257 (Version 6)
Quarter: 2017Q4

REPORT INFORMATION
  Report Type: Spontaneous
  Country: US (occurrence: US)
  Receive Date: 20170526
  Receipt Date: 20171220
  Transmission Date: 20180320
  Serious: Yes (Other)
  Sender: FDA-Public Use
  Company Number: US-009507513-1705USA012969

PATIENT
  Sex: Female
  Weight: 70.3 kg

DRUGS (2)
  1. NUVARING [Suspect]
     Active Substance: ETHINYL ESTRADIOL\ETONOGESTREL
     Dosage: 1 DF, QM
     Route: 067
  2. NUVARING [Suspect]
     Active Substance: ETHINYL ESTRADIOL\ETONOGESTREL
     Indication: CONTRACEPTION
     Dosage: 1 DF, QM
     Route: 067
     Dates: start: 201410, end: 2015

REACTIONS (33)
  - Depression [Unknown]
  - Arthralgia [Recovered/Resolved]
  - Deep vein thrombosis [Unknown]
  - Goitre [Unknown]
  - Lyme disease [Unknown]
  - Pulmonary embolism [Unknown]
  - Infectious mononucleosis [Unknown]
  - Pain [Unknown]
  - Goitre [Unknown]
  - Overweight [Unknown]
  - Iron deficiency anaemia [Unknown]
  - Anxiety [Unknown]
  - Low density lipoprotein increased [Unknown]
  - Urinary tract infection [Unknown]
  - Hyperlipidaemia [Unknown]
  - Malaise [Unknown]
  - Hypothyroidism [Unknown]
  - Chronic fatigue syndrome [Unknown]
  - Benign neoplasm of thyroid gland [Unknown]
  - Libido decreased [Unknown]
  - Major depression [Unknown]
  - Dyspnoea [Unknown]
  - Urinary tract infection [Unknown]
  - Dyspnoea [Unknown]
  - Fatigue [Unknown]
  - Thyroid disorder [Unknown]
  - Pain in extremity [Recovered/Resolved]
  - Muscular weakness [Unknown]
  - Swelling [Unknown]
  - Weight increased [Unknown]
  - Dyspnoea [Unknown]
  - Panic attack [Unknown]
  - Dyspnoea [Unknown]

NARRATIVE: CASE EVENT DATE: 2014
